FAERS Safety Report 8598101-X (Version None)
Quarter: 2012Q3

REPORT INFORMATION
  Report Type: 
  Country: None (occurrence: None)
  Receive Date: 20120816
  Receipt Date: 20120806
  Transmission Date: 20120928
  Serious: Yes (Hospitalization)
  Sender: FDA-Public Use
  Company Number: DE-AMGEN-US404483

PATIENT
  Age: 66 Year
  Sex: Male

DRUGS (19)
  1. ETANERCEPT [Suspect]
     Indication: RHEUMATOID ARTHRITIS
     Dosage: 25 MG, 2 TIMES/WK
     Route: 058
     Dates: start: 20070401, end: 20070501
  2. ETANERCEPT [Suspect]
     Dosage: 25 MG, 2 TIMES/WK
     Route: 058
     Dates: start: 20070701, end: 20071001
  3. METHOTREXATE [Concomitant]
     Dosage: 15 MG, UNSPECIFIED
     Route: 065
     Dates: start: 20071201
  4. ETANERCEPT [Suspect]
     Dosage: UNK
     Dates: start: 20100309, end: 20101101
  5. ETANERCEPT [Suspect]
     Dosage: UNK
     Dates: start: 20110201, end: 20111101
  6. METHOTREXATE [Concomitant]
     Dosage: 15 MG, WEEKLY
     Dates: start: 20111101
  7. VOLTAREN [Concomitant]
     Dosage: UNK, ^1-0-0^
     Dates: start: 20031201
  8. PREDNISOLONE [Concomitant]
     Dosage: 5 MG, ^1-0-0^
     Dates: start: 20080901
  9. CALCIUM D3                         /00944201/ [Concomitant]
     Dosage: 1000/880 UNK, ^1-0-0^
     Dates: start: 20080301
  10. METHOTREXATE [Concomitant]
     Dosage: UNK
     Route: 051
     Dates: start: 20061101, end: 20100101
  11. METHOTREXATE [Concomitant]
     Dosage: UNK
     Dates: start: 20060801, end: 20070401
  12. HYDROCHLOROTHIAZIDE [Concomitant]
     Dosage: 12.5 MG,
     Dates: start: 20091201
  13. METHOTREXATE [Concomitant]
     Dosage: UNK
     Dates: start: 20070401
  14. METHOTREXATE [Concomitant]
     Dosage: UNK
     Route: 051
     Dates: start: 20100301
  15. OMEPRAZOLE [Concomitant]
     Dosage: 20 MG, ^1-0-0^
     Dates: start: 20090401
  16. METHOTREXATE [Concomitant]
     Dosage: 20 MG, UNSPECIFIED
     Route: 065
     Dates: start: 20070901
  17. ETANERCEPT [Suspect]
     Dosage: 25 UNK, 2 TIMES/WK
     Route: 058
     Dates: start: 20030301, end: 20061101
  18. ETANERCEPT [Suspect]
     Dosage: 25 UNK, 2 TIMES/WK
     Route: 058
     Dates: start: 20080501, end: 20100129
  19. BISOPROLOL [Concomitant]
     Dosage: 5 MG, ^1-0-0^
     Dates: start: 20091201

REACTIONS (3)
  - IMPAIRED HEALING [None]
  - AMPUTATION [None]
  - INFECTED SKIN ULCER [None]
